FAERS Safety Report 6738734-6 (Version None)
Quarter: 2010Q2

REPORT INFORMATION
  Report Type: 
  Country: None (occurrence: None)
  Receive Date: 20100520
  Receipt Date: 20100513
  Transmission Date: 20101027
  Serious: Yes (Other)
  Sender: FDA-Public Use
  Company Number: 011777

PATIENT

DRUGS (1)
  1. CIMZIA [Suspect]
     Indication: DRUG USE FOR UNKNOWN INDICATION
     Dosage: 400 MG 1X/4 WEEKS SUBCUTANEOUS
     Route: 058

REACTIONS (2)
  - HEPATITIS ACUTE [None]
  - HEPATITIS C ANTIBODY POSITIVE [None]
